FAERS Safety Report 9925196 (Version 2)
Quarter: 2014Q2

REPORT INFORMATION
  Report Type: Spontaneous
  Country: US (occurrence: US)
  Receive Date: 20140226
  Receipt Date: 20140414
  Transmission Date: 20141212
  Serious: Yes (Hospitalization, Other)
  Sender: FDA-Public Use
  Company Number: US-SA-2014SA023159

PATIENT
  Age: 62 Year
  Sex: Male

DRUGS (3)
  1. LANTUS [Suspect]
     Indication: DIABETES MELLITUS
     Dosage: DOSE:90 UNIT(S)
     Route: 058
     Dates: start: 2011, end: 20140311
  2. APIDRA [Suspect]
     Dosage: DOSE: 40 U QAM, 30 U AT LUNCH AND 30 U AT DINNER BUT DOSE CAN VARY
     Route: 058
  3. LASIX [Concomitant]

REACTIONS (5)
  - Cardiac failure congestive [Unknown]
  - Gastroenteritis viral [Recovered/Resolved]
  - Diarrhoea [Recovered/Resolved]
  - Vomiting [Recovered/Resolved]
  - Dehydration [Recovered/Resolved]
